FAERS Safety Report 7073609-7 (Version None)
Quarter: 2010Q4

REPORT INFORMATION
  Report Type: 
  Country: None (occurrence: None)
  Receive Date: 20101029
  Receipt Date: 20100817
  Transmission Date: 20110411
  Serious: No
  Sender: FDA-Public Use
  Company Number: A0870817A

PATIENT
  Age: 74 Year
  Sex: Male

DRUGS (8)
  1. ADVAIR DISKUS 100/50 [Suspect]
     Indication: CHRONIC OBSTRUCTIVE PULMONARY DISEASE
     Dosage: 1PUFF TWICE PER DAY
     Route: 055
     Dates: start: 20090701
  2. TEKTURNA [Concomitant]
  3. BISOPROLOL [Concomitant]
  4. DYNACIRC [Concomitant]
  5. TORSEMIDE [Concomitant]
  6. RANEXA [Concomitant]
  7. CRESTOR [Concomitant]
  8. SYMBICORT [Concomitant]

REACTIONS (2)
  - GINGIVAL ERYTHEMA [None]
  - GINGIVAL PAIN [None]
